FAERS Safety Report 5673097-9 (Version None)
Quarter: 2008Q1

REPORT INFORMATION
  Report Type: 
  Country: None (occurrence: None)
  Receive Date: 20080319
  Receipt Date: 20080306
  Transmission Date: 20080703
  Serious: Yes (Life-Threatening, Hospitalization, Other)
  Sender: FDA-Public Use
  Company Number: US-PURDUE-USA_2007_0027834

PATIENT
  Sex: Female

DRUGS (13)
  1. OXYCONTIN [Suspect]
     Indication: PAIN
     Dosage: 80 MG, SEE TEXT
     Dates: end: 20020101
  2. IMODIUM A-D [Concomitant]
     Indication: DRUG USE FOR UNKNOWN INDICATION
  3. PROZAC [Concomitant]
     Indication: DRUG USE FOR UNKNOWN INDICATION
     Dosage: 25 MG, AM
  4. PAMELOR [Concomitant]
     Indication: DRUG USE FOR UNKNOWN INDICATION
     Dosage: 25 GRAIN, HS
  5. COMPAZINE [Concomitant]
     Indication: DRUG USE FOR UNKNOWN INDICATION
     Dosage: UNK, PRN
  6. XANAX [Suspect]
     Indication: DRUG USE FOR UNKNOWN INDICATION
     Dosage: 1 MG, TID
  7. VENTOLIN [Concomitant]
     Indication: DRUG USE FOR UNKNOWN INDICATION
     Dosage: UNK, PRN
  8. OXYCODONE HCL [Suspect]
     Indication: DRUG USE FOR UNKNOWN INDICATION
     Route: 048
  9. NORCO [Concomitant]
     Indication: DRUG USE FOR UNKNOWN INDICATION
     Dates: end: 20000909
  10. BUSPAR [Concomitant]
     Indication: DRUG USE FOR UNKNOWN INDICATION
     Dosage: 15 MG, BID
  11. PAXIL [Concomitant]
     Indication: DRUG USE FOR UNKNOWN INDICATION
     Dosage: 20 MG, DAILY
  12. NEURONTIN [Concomitant]
     Indication: DRUG USE FOR UNKNOWN INDICATION
     Dosage: 600 MG, TID
  13. TRAZODONE HCL [Concomitant]
     Indication: DRUG USE FOR UNKNOWN INDICATION
     Dosage: 300 MG, HS

REACTIONS (40)
  - ABDOMINAL PAIN [None]
  - ALVEOLAR OSTEITIS [None]
  - AMNESIA [None]
  - ANXIETY [None]
  - ATTENTION DEFICIT/HYPERACTIVITY DISORDER [None]
  - BIPOLAR DISORDER [None]
  - BRUXISM [None]
  - CONFUSIONAL STATE [None]
  - DEHYDRATION [None]
  - DEPRESSION [None]
  - DIARRHOEA [None]
  - DISORIENTATION [None]
  - DRUG ABUSE [None]
  - DRUG DEPENDENCE [None]
  - DRUG INEFFECTIVE [None]
  - DRUG TOLERANCE [None]
  - ERYTHEMA [None]
  - FLAT AFFECT [None]
  - HALLUCINATIONS, MIXED [None]
  - INADEQUATE ANALGESIA [None]
  - INSOMNIA [None]
  - INTENTIONAL DRUG MISUSE [None]
  - LEARNING DISORDER [None]
  - LETHARGY [None]
  - MEMORY IMPAIRMENT [None]
  - NAUSEA [None]
  - NERVOUSNESS [None]
  - NIGHTMARE [None]
  - PERSONALITY CHANGE [None]
  - POST-TRAUMATIC STRESS DISORDER [None]
  - SENSORY LOSS [None]
  - SHORT-BOWEL SYNDROME [None]
  - SMALL INTESTINAL OBSTRUCTION [None]
  - SOCIAL AVOIDANT BEHAVIOUR [None]
  - SPEECH DISORDER [None]
  - SUICIDE ATTEMPT [None]
  - THERMAL BURN [None]
  - THINKING ABNORMAL [None]
  - TOOTH INJURY [None]
  - TREMOR [None]
